FAERS Safety Report 8181396-4 (Version None)
Quarter: 2012Q1

REPORT INFORMATION
  Report Type: 
  Country: None (occurrence: None)
  Receive Date: 20120302
  Receipt Date: 20120222
  Transmission Date: 20120608
  Serious: No
  Sender: FDA-Public Use
  Company Number: US-B.I. PHARMACEUTICALS,INC./RIDGEFIELD-2012-BP-03430BP

PATIENT
  Sex: Female

DRUGS (7)
  1. MORPHINE SULFATE [Concomitant]
     Indication: FIBROMYALGIA
  2. OMEPRAZOLE [Concomitant]
     Indication: GASTROOESOPHAGEAL REFLUX DISEASE
     Route: 048
     Dates: start: 19970101
  3. METOPROLOL SUCCINATE [Concomitant]
     Indication: CARDIAC DISORDER
     Dosage: 25 MG
     Route: 048
     Dates: start: 20111122
  4. CERASET [Concomitant]
     Indication: MIGRAINE
     Route: 048
  5. PRADAXA [Suspect]
     Dosage: 150 MG
     Route: 048
     Dates: start: 20110911, end: 20111101
  6. MORPHINE SULFATE [Concomitant]
     Indication: INTERVERTEBRAL DISC DEGENERATION
     Route: 048
     Dates: start: 20070101
  7. PRADAXA [Suspect]
     Indication: ATRIAL FIBRILLATION
     Dosage: 300 MG
     Route: 048
     Dates: start: 20110604, end: 20110911

REACTIONS (2)
  - HEADACHE [None]
  - GASTROOESOPHAGEAL REFLUX DISEASE [None]
